FAERS Safety Report 8883567 (Version 1)
Quarter: 2012Q4

REPORT INFORMATION
  Report Type: 
  Country: US (occurrence: US)
  Receive Date: 20121102
  Receipt Date: 20121102
  Transmission Date: 20130627
  Serious: Yes (Hospitalization)
  Sender: FDA-Public Use
  Company Number: US-COVIDIEN/TYCO HEALTHCARE/MALLINCKRODT-T201203735

PATIENT
  Age: 55 Year
  Sex: Male

DRUGS (2)
  1. EXALGO EXTENDED RELEASE [Suspect]
     Indication: PAIN
     Dosage: Took 12/16 mg, tablets
     Dates: start: 20120906, end: 20120906
  2. METHADONE [Suspect]
     Indication: PAIN
     Dosage: Took 10/10 mg, tablets
     Dates: start: 20120906, end: 20120906

REACTIONS (1)
  - Incorrect dose administered [Unknown]
